FAERS Safety Report 7805565 (Version 24)
Quarter: 2016Q2

REPORT INFORMATION
  Report Type: Report from Study
  Country: CA (occurrence: CA)
  Receive Date: 20110209
  Receipt Date: 20160412
  Transmission Date: 20160815
  Serious: Yes (Other)
  Sender: FDA-Public Use
  Company Number: PHHY2011CA07119

PATIENT
  Age: 30 Year
  Sex: Male

DRUGS (1)
  1. SANDOSTATIN LAR DEPOT [Suspect]
     Active Substance: OCTREOTIDE ACETATE
     Indication: CARCINOID TUMOUR
     Dosage: 30 MG, QMO (EVERY 4 WEEKS)
     Route: 030
     Dates: start: 20081031

REACTIONS (9)
  - Lung infection [Unknown]
  - Influenza [Unknown]
  - Depression [Unknown]
  - Blood pressure increased [Unknown]
  - Cough [Unknown]
  - Nasal congestion [Unknown]
  - Gastrointestinal viral infection [Unknown]
  - Malaise [Unknown]
  - Rhinorrhoea [Unknown]

NARRATIVE: CASE EVENT DATE: 20140820
